FAERS Safety Report 17794287 (Version 1)
Quarter: 2020Q2

REPORT INFORMATION
  Report Type: Report from Study
  Country: US (occurrence: US)
  Receive Date: 20200515
  Receipt Date: 20200515
  Transmission Date: 20200714
  Serious: Yes (Hospitalization)
  Sender: FDA-Public Use
  Company Number: US-JNJFOC-20200509946

PATIENT
  Age: 72 Year
  Sex: Female
  Weight: 62.6 kg

DRUGS (15)
  1. LOMOTIL [Concomitant]
     Active Substance: ATROPINE SULFATE\DIPHENOXYLATE HYDROCHLORIDE
     Indication: DIARRHOEA
     Route: 065
     Dates: start: 20191104
  2. KYTRIL [Concomitant]
     Active Substance: GRANISETRON HYDROCHLORIDE
     Indication: NAUSEA
     Route: 065
     Dates: start: 20191111
  3. PROCHLORPERAZINE. [Concomitant]
     Active Substance: PROCHLORPERAZINE
     Indication: DIARRHOEA
     Route: 065
     Dates: start: 20200214
  4. FLEXERIL [Suspect]
     Active Substance: CYCLOBENZAPRINE HYDROCHLORIDE
     Indication: MUSCLE RELAXANT THERAPY
     Route: 048
     Dates: start: 20191002, end: 20200414
  5. TOPROL XL [Concomitant]
     Active Substance: METOPROLOL SUCCINATE
     Indication: HYPERTENSION
     Route: 065
     Dates: start: 201201
  6. EFFER K 20 MEQ [Concomitant]
     Indication: HYPOKALAEMIA
     Route: 065
     Dates: start: 20200105
  7. ADVIL [Concomitant]
     Active Substance: IBUPROFEN
     Indication: OSTEOARTHRITIS
     Route: 065
     Dates: start: 2016
  8. LYRICA [Concomitant]
     Active Substance: PREGABALIN
     Indication: NEUROPATHY PERIPHERAL
     Route: 065
     Dates: start: 20190710
  9. ELIQUIS [Concomitant]
     Active Substance: APIXABAN
     Indication: DEEP VEIN THROMBOSIS
     Route: 065
     Dates: start: 20200408
  10. THERAGRAN                          /07504101/ [Concomitant]
     Indication: VITAMIN SUPPLEMENTATION
     Route: 065
     Dates: start: 2005
  11. ULTRAM [Suspect]
     Active Substance: TRAMADOL HYDROCHLORIDE
     Indication: TUMOUR PAIN
     Dosage: AS NEEDED
     Route: 048
     Dates: start: 20190701, end: 20200421
  12. OXY.IR [Suspect]
     Active Substance: OXYCODONE HYDROCHLORIDE
     Indication: CANCER PAIN
     Route: 048
     Dates: start: 20200330
  13. NUEDEXTA [Concomitant]
     Active Substance: DEXTROMETHORPHAN HYDROBROMIDE\QUINIDINE SULFATE
     Indication: MULTIPLE ALLERGIES
     Route: 065
     Dates: start: 2012
  14. CATAPRES                           /00171101/ [Concomitant]
     Active Substance: CLONIDINE
     Indication: HYPERTENSION
     Route: 065
     Dates: start: 2013
  15. DURAGESIC [Suspect]
     Active Substance: FENTANYL
     Indication: CANCER PAIN
     Route: 062
     Dates: start: 20190826

REACTIONS (2)
  - Acute kidney injury [Not Recovered/Not Resolved]
  - Encephalopathy [Recovered/Resolved]

NARRATIVE: CASE EVENT DATE: 20200414
